FAERS Safety Report 12669630 (Version 4)
Quarter: 2016Q4

REPORT INFORMATION
  Report Type: Report from Study
  Country: IT (occurrence: IT)
  Receive Date: 20160819
  Receipt Date: 20161015
  Transmission Date: 20170207
  Serious: Yes (Death, Hospitalization, Other)
  Sender: FDA-Public Use
  Company Number: IT-AMGEN-ITANI2016108874

PATIENT
  Age: 65 Year
  Sex: Male

DRUGS (1)
  1. CARFILZOMIB [Suspect]
     Active Substance: CARFILZOMIB
     Indication: PLASMA CELL MYELOMA
     Dosage: 112 MG, UNK
     Route: 042
     Dates: start: 20151116, end: 20160303

REACTIONS (1)
  - Sepsis [Fatal]
